FAERS Safety Report 9665737 (Version 5)
Quarter: 2014Q3

REPORT INFORMATION
  Report Type: Report from Study
  Country: IT (occurrence: IT)
  Receive Date: 20131104
  Receipt Date: 20140819
  Transmission Date: 20150326
  Serious: Yes (Death, Hospitalization)
  Sender: FDA-Public Use
  Company Number: PHHO2013IT012360

PATIENT

DRUGS (5)
  1. LASIX [Concomitant]
     Active Substance: FUROSEMIDE
  2. NEORAL [Suspect]
     Active Substance: CYCLOSPORINE
     Indication: HEART TRANSPLANT
     Dosage: 50 MG, BID
     Route: 048
     Dates: start: 20130415
  3. CARDICOR [Concomitant]
     Active Substance: BISOPROLOL
  4. DELTACORTENE [Concomitant]
     Active Substance: PREDNISONE
  5. MYCOPHENOLATE MOFETIL. [Suspect]
     Active Substance: MYCOPHENOLATE MOFETIL
     Indication: HEART TRANSPLANT
     Dosage: 250 MG, UNK
     Route: 048
     Dates: start: 20130415, end: 20130718

REACTIONS (1)
  - Adenocarcinoma gastric [Fatal]

NARRATIVE: CASE EVENT DATE: 20130905
